FAERS Safety Report 14184336 (Version 5)
Quarter: 2019Q1

REPORT INFORMATION
  Report Type: Spontaneous
  Country: FR (occurrence: FR)
  Receive Date: 20171113
  Receipt Date: 20190207
  Transmission Date: 20190417
  Serious: Yes (Hospitalization, Other)
  Sender: FDA-Public Use
  Company Number: FR-MYLANLABS-16X-056-1260803-00

PATIENT
  Age: 42 Year
  Sex: Female
  Weight: 56 kg

DRUGS (8)
  1. ESCITALOPRAM [Suspect]
     Active Substance: ESCITALOPRAM OXALATE
     Dosage: 840 MILLIGRAM, TOTAL
     Route: 048
     Dates: start: 20150301, end: 20150301
  2. VENLAFAXINE [Suspect]
     Active Substance: VENLAFAXINE HYDROCHLORIDE
     Dosage: 7875 MILLIGRAM, TOTAL
     Route: 048
     Dates: start: 20150301, end: 20150301
  3. BROMAZEPAM [Suspect]
     Active Substance: BROMAZEPAM
     Dosage: 180 MILLIGRAM, TOTAL
     Route: 048
     Dates: start: 20150301, end: 20150301
  4. VENLAFAXINE [Suspect]
     Active Substance: VENLAFAXINE HYDROCHLORIDE
     Indication: PRODUCT USED FOR UNKNOWN INDICATION
     Dosage: 7875 MG, UNK
     Route: 048
  5. ESCITALOPRAM [Suspect]
     Active Substance: ESCITALOPRAM OXALATE
     Indication: PRODUCT USED FOR UNKNOWN INDICATION
     Dosage: 840 MG, UNK
     Route: 048
  6. LORMETAZEPAM [Suspect]
     Active Substance: LORMETAZEPAM
     Indication: PRODUCT USED FOR UNKNOWN INDICATION
     Dosage: 14 MG, UNK
     Route: 048
  7. LORMETAZEPAM [Suspect]
     Active Substance: LORMETAZEPAM
     Dosage: 14 MILLIGRAM, TOTAL
     Route: 048
     Dates: start: 20150301, end: 20150301
  8. BROMAZEPAM [Suspect]
     Active Substance: BROMAZEPAM
     Indication: PRODUCT USED FOR UNKNOWN INDICATION
     Dosage: 180 MG, UNK
     Route: 048

REACTIONS (16)
  - Electrocardiogram QT prolonged [Recovered/Resolved]
  - Confusional state [Recovered/Resolved]
  - Toxicity to various agents [Unknown]
  - Intentional overdose [Unknown]
  - Eye movement disorder [Recovered/Resolved]
  - Overdose [Unknown]
  - Suicidal ideation [Recovered/Resolved]
  - Nystagmus [Recovered/Resolved]
  - Clonus [Recovered/Resolved]
  - Psychomotor skills impaired [Recovered/Resolved]
  - Medication error [Unknown]
  - Suicide attempt [Recovered/Resolved]
  - Psychomotor retardation [Recovered/Resolved]
  - Intentional product misuse [Unknown]
  - Hypoglycaemia [Recovered/Resolved]
  - Drug abuse [Unknown]

NARRATIVE: CASE EVENT DATE: 20150301
